FAERS Safety Report 13791094 (Version 1)
Quarter: 2017Q3

REPORT INFORMATION
  Report Type: Spontaneous
  Country: US (occurrence: US)
  Receive Date: 20170725
  Receipt Date: 20170725
  Transmission Date: 20171127
  Serious: Yes (Other)
  Sender: FDA-Public Use
  Company Number: US-TEVA-790887USA

PATIENT
  Sex: Female

DRUGS (2)
  1. BETASERON [Suspect]
     Active Substance: INTERFERON BETA-1B
     Route: 065
  2. COPAXONE [Suspect]
     Active Substance: GLATIRAMER ACETATE
     Indication: MULTIPLE SCLEROSIS
     Dosage: UNKNOWN FORM STRENGTH FOR CAPAXONE
     Route: 065

REACTIONS (12)
  - Blindness unilateral [Unknown]
  - Intervertebral disc protrusion [Unknown]
  - Gait disturbance [Unknown]
  - Muscle atrophy [Unknown]
  - Meningitis staphylococcal [Unknown]
  - Femur fracture [Unknown]
  - Retinal artery occlusion [Unknown]
  - Dysstasia [Unknown]
  - Gait inability [Unknown]
  - Asthenia [Unknown]
  - Adverse event [Unknown]
  - Scoliosis [Unknown]

NARRATIVE: CASE EVENT DATE: 2003
